FAERS Safety Report 20310198 (Version 13)
Quarter: 2022Q2

REPORT INFORMATION
  Report Type: Report from Study
  Country: ES (occurrence: None)
  Receive Date: 20220107
  Receipt Date: 20220602
  Transmission Date: 20220721
  Serious: Yes (Hospitalization, Other)
  Sender: FDA-Public Use
  Company Number: ES-ROCHE-2987002

PATIENT
  Age: 77 Year
  Sex: Female
  Weight: 61 kg

DRUGS (21)
  1. ATEZOLIZUMAB [Suspect]
     Active Substance: ATEZOLIZUMAB
     Indication: Breast cancer
     Dosage: DOSE: 1200?LAST DOSE BEFORE SAE 02/12/2021
     Route: 041
     Dates: start: 20211111
  2. TRASTUZUMAB [Suspect]
     Active Substance: TRASTUZUMAB
     Indication: Breast cancer
     Dosage: LOADING DOSE OF 8 MG/KG I.V. THEN 6 MG/KG I.V.?LAST DOSE BEFORE SAE 02/12/2021, DOSE: 366
     Route: 041
     Dates: start: 20211111
  3. PERTUZUMAB [Suspect]
     Active Substance: PERTUZUMAB
     Indication: Breast cancer
     Dosage: DOSE: 420, LAST DOSE BEFORE SAE 02/12/2021?LOADING DOSE OF 840 MG IV., THEN 420 MG I.V.
     Route: 042
     Dates: start: 20211111
  4. CARBOPLATIN [Suspect]
     Active Substance: CARBOPLATIN
     Indication: Breast cancer
     Dosage: DOSE: 185, LAST DOSE BEFORE SAE 09/03/2022?AT AUC 2 I.V. ON DAY 1 AND DAY 8,
     Route: 042
     Dates: start: 20211111
  5. PACLITAXEL [Suspect]
     Active Substance: PACLITAXEL
     Indication: Breast cancer
     Dosage: DOSE: 140, LAST DOSE BEFORE SAE 09/12/2021?AT 90 MG/M2
     Route: 042
     Dates: start: 20211111
  6. PHESGO [Suspect]
     Active Substance: HYALURONIDASE-ZZXF\PERTUZUMAB\TRASTUZUMAB
     Indication: Breast cancer
     Dosage: LAST DOSE BEFORE SAE:02/03/2022
     Route: 058
     Dates: start: 20220119
  7. OMEPRAZOLE [Concomitant]
     Active Substance: OMEPRAZOLE
     Route: 042
     Dates: start: 20211216
  8. OMEPRAZOLE [Concomitant]
     Active Substance: OMEPRAZOLE
     Dates: start: 20220509, end: 20220526
  9. METHYLPREDNISOLONE [Concomitant]
     Active Substance: METHYLPREDNISOLONE
     Route: 042
     Dates: start: 20211217
  10. METHYLPREDNISOLONE [Concomitant]
     Active Substance: METHYLPREDNISOLONE
     Route: 042
     Dates: start: 20220126, end: 20220207
  11. METHYLPREDNISOLONE [Concomitant]
     Active Substance: METHYLPREDNISOLONE
     Route: 042
     Dates: start: 20211222, end: 20211222
  12. METHYLPREDNISOLONE [Concomitant]
     Active Substance: METHYLPREDNISOLONE
     Route: 042
     Dates: start: 20211221, end: 20211221
  13. ENOXAPARIN SODIUM [Concomitant]
     Active Substance: ENOXAPARIN SODIUM
     Route: 058
     Dates: start: 20211217
  14. MEROPENEM [Concomitant]
     Active Substance: MEROPENEM
     Dates: start: 20220126, end: 20220131
  15. GANCICLOVIR [Concomitant]
     Active Substance: GANCICLOVIR
     Dates: start: 20220126, end: 20220204
  16. DEFLAZACORT [Concomitant]
     Active Substance: DEFLAZACORT
     Dates: start: 20220208, end: 20220219
  17. LOPERAMIDE [Concomitant]
     Active Substance: LOPERAMIDE
     Route: 048
     Dates: start: 20211211, end: 20211214
  18. ENOXAPARIN SODIUM [Concomitant]
     Active Substance: ENOXAPARIN SODIUM
     Dates: start: 20220509, end: 20220510
  19. LORAZEPAM [Concomitant]
     Active Substance: LORAZEPAM
     Dates: start: 20220509, end: 20220526
  20. ACETAMINOPHEN [Concomitant]
     Active Substance: ACETAMINOPHEN
  21. PRIMPERAN [Concomitant]
     Active Substance: METOCLOPRAMIDE HYDROCHLORIDE

REACTIONS (4)
  - Diarrhoea [Recovered/Resolved]
  - Rectal haemorrhage [Recovered/Resolved]
  - Colitis [Recovered/Resolved]
  - Diarrhoea [Recovered/Resolved]

NARRATIVE: CASE EVENT DATE: 20211214
